FAERS Safety Report 9442574 (Version 1)
Quarter: 2013Q3

REPORT INFORMATION
  Report Type: Report from Study
  Country: AT (occurrence: AT)
  Receive Date: 20130806
  Receipt Date: 20130806
  Transmission Date: 20140515
  Serious: Yes (Other)
  Sender: FDA-Public Use
  Company Number: AT-ASTELLAS-2013EU006481

PATIENT
  Age: 54 Year
  Sex: Male
  Weight: 87 kg

DRUGS (1)
  1. TACROLIMUS MR4 CAPSULES [Suspect]
     Indication: RENAL TRANSPLANT
     Dosage: UNK
     Route: 048
     Dates: start: 20120412

REACTIONS (1)
  - Medication error [Recovered/Resolved]
